FAERS Safety Report 8832522 (Version 1)
Quarter: 2012Q4

REPORT INFORMATION
  Report Type: 
  Country: US (occurrence: US)
  Receive Date: 20121010
  Receipt Date: 20121010
  Transmission Date: 20130627
  Serious: Yes (Other)
  Sender: FDA-Public Use
  Company Number: US-AMGEN-USASP2012063635

PATIENT
  Age: 86 Year
  Sex: Female

DRUGS (3)
  1. PROLIA [Suspect]
     Indication: OSTEOPOROSIS POSTMENOPAUSAL
     Dosage: UNK
     Dates: start: 201204
  2. LIPITOR [Concomitant]
  3. ASPIRIN [Concomitant]

REACTIONS (4)
  - VIIth nerve paralysis [Unknown]
  - Papule [Unknown]
  - Skin discolouration [Unknown]
  - Swelling face [Unknown]
